FAERS Safety Report 8490672 (Version 2)
Quarter: 2013Q2

REPORT INFORMATION
  Report Type: Report from Study
  Country: MX (occurrence: MX)
  Receive Date: 20120403
  Receipt Date: 20130425
  Transmission Date: 20140414
  Serious: Yes (Death)
  Sender: FDA-Public Use
  Company Number: PHHY2012MX027343

PATIENT
  Age: 54 Year
  Sex: Female

DRUGS (2)
  1. GLIVEC [Suspect]
     Indication: CHRONIC MYELOID LEUKAEMIA
     Dosage: 600 MG, UNK
     Dates: start: 20040913
  2. GLIVEC [Suspect]
     Dosage: 800 MG, UNK
     Dates: start: 20111103

REACTIONS (1)
  - Death [Fatal]
